FAERS Safety Report 4306112-5 (Version None)
Quarter: 2004Q1

REPORT INFORMATION
  Report Type: 
  Country: None (occurrence: None)
  Receive Date: 20040225
  Receipt Date: 20030210
  Transmission Date: 20041129
  Serious: No
  Sender: FDA-Public Use
  Company Number: US-BRISTOL-MYERS SQUIBB COMPANY-12186235

PATIENT
  Sex: Male

DRUGS (2)
  1. EXCEDRIN ES [Suspect]
     Indication: NECK PAIN
     Dosage: NUMBER OF DOSAGES: UP TO 8 A DAY
     Route: 048
     Dates: end: 20021001
  2. IBUPROFEN [Suspect]

REACTIONS (1)
  - ALANINE AMINOTRANSFERASE INCREASED [None]
